FAERS Safety Report 16373492 (Version 1)
Quarter: 2019Q2

REPORT INFORMATION
  Report Type: Spontaneous
  Country: US (occurrence: US)
  Receive Date: 20190530
  Receipt Date: 20190530
  Transmission Date: 20190711
  Serious: No
  Sender: FDA-Public Use
  Company Number: US-SA-2019SA144665

PATIENT

DRUGS (10)
  1. METHOTREXATE. [Concomitant]
     Active Substance: METHOTREXATE
     Indication: RHEUMATOID ARTHRITIS
     Dosage: 0.6 ML, QW
     Dates: start: 20190411
  2. DUPIXENT [Suspect]
     Active Substance: DUPILUMAB
  3. METHOTREXATE. [Suspect]
     Active Substance: METHOTREXATE
     Indication: RHEUMATOID ARTHRITIS
     Route: 048
  4. DENOSUMAB [Suspect]
     Active Substance: DENOSUMAB
  5. CODEINE SALT NOT SPECIFIED [Suspect]
     Active Substance: CODEINE
  6. LAMOTRIGINE. [Suspect]
     Active Substance: LAMOTRIGINE
  7. CEPHALEXIN [CEFALEXIN] [Suspect]
     Active Substance: CEPHALEXIN
  8. CYCLOSPORINE. [Suspect]
     Active Substance: CYCLOSPORINE
  9. DEMEROL [Suspect]
     Active Substance: MEPERIDINE HYDROCHLORIDE
  10. AZATHIOPRINE. [Suspect]
     Active Substance: AZATHIOPRINE

REACTIONS (3)
  - Drug hypersensitivity [Unknown]
  - Vomiting [Unknown]
  - Nausea [Unknown]
